FAERS Safety Report 8206902-2 (Version None)
Quarter: 2012Q1

REPORT INFORMATION
  Report Type: 
  Country: None (occurrence: None)
  Receive Date: 20120314
  Receipt Date: 20120305
  Transmission Date: 20120608
  Serious: Yes (Life-Threatening, Hospitalization, Other)
  Sender: FDA-Public Use
  Company Number: US-SANOFI-AVENTIS-2012SA009300

PATIENT
  Age: 62 Year
  Sex: Female
  Weight: 86.18 kg

DRUGS (28)
  1. ASPIRIN [Concomitant]
     Dosage: IN AM
  2. FISH OIL [Concomitant]
     Dosage: IN AM
  3. OPHTHALMOLOGICALS [Concomitant]
     Dosage: 1 DROP IN EACH EYE IN AM AND PM
  4. MICROGENICS GLUCOSAMINE MSM AND CHONDROITIN UNFLAVOURED JOINT POWDER [Concomitant]
     Dosage: IN AM
  5. ARANESP [Concomitant]
     Dosage: BIWEEKLY
  6. CARDIZEM CD [Concomitant]
     Dosage: IN AM
  7. POTASSIUM CHLORIDE [Concomitant]
     Dosage: IN AM
  8. LANTUS [Suspect]
     Dosage: DOSE:45 UNIT(S)
     Route: 058
     Dates: start: 20081001
  9. LYRICA [Concomitant]
     Dosage: IN AM
  10. ALL OTHER THERAPEUTIC PRODUCTS [Concomitant]
     Dosage: UP TO 4 TIMES DAILY AS NEEDED
  11. VITAMIN D [Concomitant]
     Dosage: IN AM
  12. COREG [Concomitant]
     Dosage: AM AND PM
  13. LUMIGAN [Concomitant]
     Dosage: 1 DROP IN EACH EYE DAILY IN PM
  14. NORCO [Concomitant]
     Dosage: UP TO 4 TIMES DAILY AS NEEDED
  15. COLACE [Concomitant]
     Dosage: IN AM AND PM
  16. TYLENOL [Concomitant]
  17. ELMIRON [Concomitant]
  18. LASIX [Concomitant]
     Dosage: AM AND LUNCH
  19. PLAVIX [Concomitant]
     Dosage: IN AM
  20. PROTONIX [Concomitant]
     Dosage: IN AM
  21. OPTICLICK [Suspect]
     Dates: start: 20081001
  22. JANUVIA [Concomitant]
     Dosage: IN AM
  23. ZOCOR [Concomitant]
     Dosage: AT NIGHT
  24. MULTI-VITAMINS [Concomitant]
     Dosage: IN AM
  25. FOSAMAX [Concomitant]
     Dosage: EVERY SUNDAY
  26. GLUCOTROL [Concomitant]
     Dosage: 10 MG AND 5 MG DAILY LUCH AND DINNER
  27. VITAMIN B COMPLEX CAP [Concomitant]
     Dosage: IN AM
  28. NIACIN [Concomitant]
     Dosage: IN AM

REACTIONS (8)
  - BLINDNESS [None]
  - ANAEMIA OF CHRONIC DISEASE [None]
  - SEPTIC SHOCK [None]
  - PNEUMONIA [None]
  - RENAL FAILURE [None]
  - STENT PLACEMENT [None]
  - CARDIAC FAILURE CONGESTIVE [None]
  - CHRONIC OBSTRUCTIVE PULMONARY DISEASE [None]
